FAERS Safety Report 21100999 (Version 1)
Quarter: 2022Q3

REPORT INFORMATION
  Report Type: Spontaneous
  Country: US (occurrence: None)
  Receive Date: 20220719
  Receipt Date: 20220719
  Transmission Date: 20221027
  Serious: Yes (Hospitalization)
  Sender: FDA-Public Use
  Company Number: None

PATIENT
  Age: 57 Year
  Sex: Female

DRUGS (1)
  1. CUVITRU [Suspect]
     Active Substance: HUMAN IMMUNOGLOBULIN G
     Indication: Immunodeficiency
     Dosage: OTHER QUANTITY : 10 GM/50ML;?FREQUENCY : WEEKLY;?WITHDRAW 70 ML INTO TWO 50ML SYRINGES. INFUSE 70 ML
     Route: 058
     Dates: start: 20201216

REACTIONS (3)
  - Respiratory tract infection [None]
  - Migraine [None]
  - Therapy interrupted [None]

NARRATIVE: CASE EVENT DATE: 20220627
